FAERS Safety Report 17792452 (Version 2)
Quarter: 2020Q2

REPORT INFORMATION
  Report Type: Spontaneous
  Country: US (occurrence: US)
  Receive Date: 20200515
  Receipt Date: 20200622
  Transmission Date: 20200714
  Serious: No
  Sender: FDA-Public Use
  Company Number: US-GILEAD-2020-0466376

PATIENT
  Sex: Female

DRUGS (1)
  1. TRUVADA [Suspect]
     Active Substance: EMTRICITABINE\TENOFOVIR DISOPROXIL FUMARATE
     Indication: COVID-19
     Dosage: 1 DOSAGE FORM, ONCE
     Route: 065

REACTIONS (2)
  - Prescription drug used without a prescription [Recovered/Resolved]
  - Off label use [Recovered/Resolved]
